FAERS Safety Report 5819372-6 (Version None)
Quarter: 2008Q3

REPORT INFORMATION
  Report Type: 
  Country: None (occurrence: None)
  Receive Date: 20080723
  Receipt Date: 20080627
  Transmission Date: 20090109
  Serious: Yes (Other)
  Sender: FDA-Public Use
  Company Number: PR-ROCHE-576616

PATIENT
  Age: 30 Year
  Sex: Female

DRUGS (4)
  1. SAQUINAVIR [Suspect]
     Route: 048
     Dates: start: 20080301
  2. NELFINAVIR [Suspect]
     Route: 048
  3. SAQUINAVIR MESILATE [Suspect]
     Route: 048
     Dates: start: 20080301
  4. LAMIVUDINE AND ZIDOVUDINE [Suspect]
     Route: 048

REACTIONS (1)
  - ABORTION SPONTANEOUS [None]
